FAERS Safety Report 17202961 (Version 5)
Quarter: 2020Q3

REPORT INFORMATION
  Report Type: Spontaneous
  Country: US (occurrence: US)
  Receive Date: 20191226
  Receipt Date: 20200915
  Transmission Date: 20201102
  Serious: Yes (Hospitalization)
  Sender: FDA-Public Use
  Company Number: US-PFIZER INC-2019557708

PATIENT
  Age: 51 Year
  Sex: Female
  Weight: 58.96 kg

DRUGS (3)
  1. TIZANIDINE. [Concomitant]
     Active Substance: TIZANIDINE
     Dosage: 4 MG, 1X/DAY (EVERY NIGHT)
  2. LYRICA [Suspect]
     Active Substance: PREGABALIN
     Indication: SPINAL OPERATION
     Dosage: 300 MG, 1X/DAY (100 MG IN THE MORNING, 200 MG AT NIGHT)
     Dates: start: 2012
  3. LYRICA [Suspect]
     Active Substance: PREGABALIN
     Indication: NECK SURGERY

REACTIONS (6)
  - Back pain [Unknown]
  - Pain [Not Recovered/Not Resolved]
  - Off label use [Unknown]
  - Hypertension [Unknown]
  - Neck pain [Unknown]
  - Product use in unapproved indication [Unknown]

NARRATIVE: CASE EVENT DATE: 2012
